FAERS Safety Report 6735710-4 (Version None)
Quarter: 2010Q2

REPORT INFORMATION
  Report Type: 
  Country: None (occurrence: None)
  Receive Date: 20100521
  Receipt Date: 20100511
  Transmission Date: 20101027
  Serious: Yes (Hospitalization)
  Sender: FDA-Public Use
  Company Number: A0773185A

PATIENT
  Sex: Female
  Weight: 111.4 kg

DRUGS (7)
  1. AVANDIA [Suspect]
     Indication: DIABETES MELLITUS
     Dosage: 8MG PER DAY
     Route: 048
     Dates: start: 20020101, end: 20070101
  2. PROTONIX [Concomitant]
  3. LORTAB [Concomitant]
  4. ALBUTEROL [Concomitant]
  5. DIOVAN HCT [Concomitant]
  6. SINGULAIR [Concomitant]
  7. FLEXERIL [Concomitant]

REACTIONS (6)
  - ANGINA PECTORIS [None]
  - CHEST PAIN [None]
  - DYSPNOEA [None]
  - HYPERTENSION [None]
  - PULMONARY HYPERTENSION [None]
  - WEIGHT INCREASED [None]
